FAERS Safety Report 5603487-1 (Version None)
Quarter: 2008Q1

REPORT INFORMATION
  Report Type: 
  Country: None (occurrence: None)
  Receive Date: 20080123
  Receipt Date: 20080107
  Transmission Date: 20080703
  Serious: Yes (Other)
  Sender: FDA-Public Use
  Company Number: 2008PV033915

PATIENT
  Age: 41 Year
  Sex: Female
  Weight: 99.7913 kg

DRUGS (11)
  1. SYMLIN [Suspect]
     Indication: TYPE 1 DIABETES MELLITUS
     Dosage: SEE IMAGE
     Route: 058
     Dates: start: 20071109, end: 20071112
  2. SYMLIN [Suspect]
     Indication: TYPE 1 DIABETES MELLITUS
     Dosage: SEE IMAGE
     Route: 058
     Dates: start: 20071112, end: 20071226
  3. SYMLIN [Suspect]
     Indication: TYPE 1 DIABETES MELLITUS
     Dosage: SEE IMAGE
     Route: 058
     Dates: start: 20071226
  4. LANTUS [Suspect]
     Indication: TYPE 1 DIABETES MELLITUS
     Dosage: 20 UNITS; QAM; SC; 26 UNITS; QPM; SC; 26 UNITS; BID; SC
     Route: 058
     Dates: end: 20071215
  5. LANTUS [Suspect]
     Indication: TYPE 1 DIABETES MELLITUS
     Dosage: 20 UNITS; QAM; SC; 26 UNITS; QPM; SC; 26 UNITS; BID; SC
     Route: 058
     Dates: start: 20071226
  6. LANTUS [Suspect]
     Indication: TYPE 1 DIABETES MELLITUS
     Dosage: 20 UNITS; QAM; SC; 26 UNITS; QPM; SC; 26 UNITS; BID; SC
     Route: 058
     Dates: start: 20071226
  7. HUMALOG [Concomitant]
  8. MICARDIS [Concomitant]
  9. METOPROLOL - SLOW RELEASE [Concomitant]
  10. EZETIMIBE [Concomitant]
  11. CRESTOR [Concomitant]

REACTIONS (6)
  - BLOOD GLUCOSE DECREASED [None]
  - CONFUSIONAL STATE [None]
  - CRYING [None]
  - INCREASED APPETITE [None]
  - NAUSEA [None]
  - WEIGHT DECREASED [None]
